FAERS Safety Report 16412860 (Version 1)
Quarter: 2019Q2

REPORT INFORMATION
  Report Type: Spontaneous
  Country: US (occurrence: US)
  Receive Date: 20190611
  Receipt Date: 20190611
  Transmission Date: 20190711
  Serious: No
  Sender: FDA-Public Use
  Company Number: US-GLAXOSMITHKLINE-US2019AMR103151

PATIENT
  Age: 7 Year
  Sex: Female

DRUGS (2)
  1. BENLYSTA [Suspect]
     Active Substance: BELIMUMAB
     Indication: PRODUCT USED FOR UNKNOWN INDICATION
     Dosage: 100 ML, UNK
     Route: 042
     Dates: start: 20190529
  2. BENLYSTA [Suspect]
     Active Substance: BELIMUMAB
     Dosage: 100 ML, UNK
     Route: 042
     Dates: start: 20190529

REACTIONS (3)
  - Oropharyngeal pain [Unknown]
  - Nasopharyngitis [Unknown]
  - Cough [Unknown]
